FAERS Safety Report 8260171-6 (Version None)
Quarter: 2012Q2

REPORT INFORMATION
  Report Type: 
  Country: None (occurrence: None)
  Receive Date: 20120404
  Receipt Date: 20120326
  Transmission Date: 20120825
  Serious: Yes (Hospitalization)
  Sender: FDA-Public Use
  Company Number: US-JNJFOC-20120213083

PATIENT
  Sex: Male
  Weight: 112.49 kg

DRUGS (18)
  1. XANAX [Concomitant]
     Indication: ANXIETY
     Route: 048
     Dates: start: 20111207
  2. XANAX [Concomitant]
     Indication: IRRITABILITY
     Route: 048
     Dates: start: 20120124
  3. XANAX [Concomitant]
     Route: 048
     Dates: start: 20120101
  4. TEMAZEPAM [Concomitant]
     Indication: INSOMNIA
     Route: 048
     Dates: start: 20120124
  5. PALIPERIDONE [Suspect]
     Indication: SCHIZOPHRENIA
     Route: 048
     Dates: start: 20111021
  6. COGENTIN [Concomitant]
     Route: 048
     Dates: start: 20111118, end: 20111122
  7. COGENTIN [Concomitant]
     Route: 048
     Dates: start: 20111118, end: 20111122
  8. COGENTIN [Concomitant]
     Indication: DYSARTHRIA
     Route: 048
     Dates: start: 20111123, end: 20120123
  9. IBUPROFEN [Concomitant]
     Indication: PAIN
     Dates: start: 20120101
  10. COGENTIN [Concomitant]
     Route: 048
     Dates: start: 20120124
  11. LAMICTAL [Concomitant]
     Indication: ANXIETY
     Route: 048
     Dates: start: 20120124
  12. HALDOL [Concomitant]
     Indication: PSYCHOTIC DISORDER
  13. COGENTIN [Concomitant]
     Indication: EXTRAPYRAMIDAL DISORDER
     Route: 048
     Dates: start: 20111123, end: 20120123
  14. VISTARIL [Concomitant]
     Indication: ANXIETY
     Route: 048
     Dates: start: 20110911
  15. XANAX [Concomitant]
     Route: 048
     Dates: start: 20120124
  16. XANAX [Concomitant]
     Route: 048
     Dates: start: 20120101
  17. XANAX [Concomitant]
     Route: 048
     Dates: start: 20111207
  18. COGENTIN [Concomitant]
     Route: 048
     Dates: start: 20120124

REACTIONS (1)
  - DEPRESSION [None]
